FAERS Safety Report 10010246 (Version 1)
Quarter: 2014Q1

REPORT INFORMATION
  Report Type: Spontaneous
  Country: BR (occurrence: BR)
  Receive Date: 20140313
  Receipt Date: 20140313
  Transmission Date: 20141002
  Serious: Yes (Death, Other)
  Sender: FDA-Public Use
  Company Number: BR-ELI_LILLY_AND_COMPANY-BR201403002972

PATIENT
  Sex: Male

DRUGS (1)
  1. HUMULIN R [Suspect]
     Indication: TYPE 2 DIABETES MELLITUS
     Dosage: UNK, UNKNOWN
     Route: 065

REACTIONS (10)
  - Oesophageal carcinoma [Fatal]
  - Oesophageal oedema [Fatal]
  - Asphyxia [Fatal]
  - Visual acuity reduced [Unknown]
  - Neuropathy peripheral [Not Recovered/Not Resolved]
  - Mobility decreased [Unknown]
  - Injury [Unknown]
  - Fall [Unknown]
  - Head injury [Unknown]
  - Pain [Unknown]
